FAERS Safety Report 13989570 (Version 2)
Quarter: 2017Q4

REPORT INFORMATION
  Report Type: Spontaneous
  Country: US (occurrence: US)
  Receive Date: 20170920
  Receipt Date: 20171003
  Transmission Date: 20180321
  Serious: Yes (Death, Other)
  Sender: FDA-Public Use
  Company Number: US-AUROBINDO-AUR-APL-2017-40284

PATIENT
  Sex: Male

DRUGS (1)
  1. AMIODARONE HYDROCHLORIDE 200 MG TABLET [Suspect]
     Active Substance: AMIODARONE HYDROCHLORIDE
     Indication: ATRIAL FIBRILLATION
     Dosage: UNK
     Route: 065
     Dates: start: 201605

REACTIONS (8)
  - Cough [Fatal]
  - Fatigue [Fatal]
  - Wheezing [Fatal]
  - Asthenia [Fatal]
  - Chest pain [Fatal]
  - Respiratory failure [Fatal]
  - Pulmonary toxicity [Fatal]
  - Dyspnoea [Fatal]

NARRATIVE: CASE EVENT DATE: 201607
